FAERS Safety Report 6384259-X (Version None)
Quarter: 2009Q4

REPORT INFORMATION
  Report Type: 
  Country: None (occurrence: None)
  Receive Date: 20091001
  Receipt Date: 20090920
  Transmission Date: 20100525
  Serious: Yes (Other)
  Sender: FDA-Public Use
  Company Number: US-PFIZER INC-2009251480

PATIENT
  Sex: Male
  Weight: 77 kg

DRUGS (8)
  1. ACCUPRIL [Suspect]
     Indication: CARDIAC DISORDER
     Dosage: 40 MG, 1X/DAY
     Route: 048
     Dates: start: 20050101, end: 20090301
  2. ACCUPRIL [Suspect]
     Dosage: 40 MG, 1X/DAY
     Route: 048
     Dates: start: 20090301
  3. PLAVIX [Suspect]
     Indication: STENT PLACEMENT
     Dosage: 75 MG, 1X/DAY
     Route: 048
     Dates: start: 20050315, end: 20090310
  4. PLAVIX [Suspect]
     Dosage: 75 MG, 1X/DAY
     Route: 048
     Dates: start: 20090313
  5. COREG [Suspect]
     Indication: CARDIAC DISORDER
     Dosage: 60 MG, 1X/DAY
     Route: 048
     Dates: start: 20050101, end: 20090301
  6. COREG [Suspect]
     Dosage: 60 MG, 1X/DAY
     Route: 048
     Dates: start: 20090301
  7. LIPITOR [Concomitant]
     Indication: BLOOD CHOLESTEROL
     Dosage: 50 MG, 1X/DAY
  8. ACETYLSALICYLIC ACID [Concomitant]
     Route: 048

REACTIONS (4)
  - CONJUNCTIVITIS [None]
  - FATIGUE [None]
  - TRAUMATIC HAEMATOMA [None]
  - VASCULAR OCCLUSION [None]
